FAERS Safety Report 16669496 (Version 1)
Quarter: 2019Q3

REPORT INFORMATION
  Report Type: Spontaneous
  Country: CA (occurrence: CA)
  Receive Date: 20190805
  Receipt Date: 20190805
  Transmission Date: 20191004
  Serious: Yes (Other)
  Sender: FDA-Public Use
  Company Number: None

PATIENT
  Age: 76 Year
  Sex: Male
  Weight: 90 kg

DRUGS (2)
  1. KIRKLAND MULTIVITAMINS FOR SENIORS [Concomitant]
  2. JUBLIA [Suspect]
     Active Substance: EFINACONAZOLE
     Indication: FUNGAL INFECTION
     Dosage: ?          QUANTITY:5 DROP(S);OTHER ROUTE:APPLIED TO TOENAILS?
     Dates: start: 20190610, end: 20190805

REACTIONS (1)
  - Skin disorder [None]

NARRATIVE: CASE EVENT DATE: 20190805
